FAERS Safety Report 10222565 (Version 2)
Quarter: 2014Q2

REPORT INFORMATION
  Report Type: Spontaneous
  Country: US (occurrence: US)
  Receive Date: 20140606
  Receipt Date: 20140606
  Transmission Date: 20141212
  Serious: No
  Sender: FDA-Public Use
  Company Number: US-MYLANLABS-2014S1007322

PATIENT
  Age: 53 Year
  Sex: Male
  Weight: 88 kg

DRUGS (6)
  1. DOXEPIN HYDROCHLORIDE CAPSULES, USP [Suspect]
     Indication: DEPRESSION
     Route: 048
     Dates: end: 201403
  2. DOXEPIN HYDROCHLORIDE CAPSULES, USP [Suspect]
     Indication: RECTAL SPASM
     Route: 048
     Dates: end: 201403
  3. DOXEPIN HYDROCHLORIDE CAPSULES, USP [Suspect]
     Indication: ANXIETY
     Route: 048
     Dates: end: 201403
  4. DOXEPIN HYDROCHLORIDE CAPSULES, USP [Suspect]
     Indication: DEPRESSION
     Route: 048
     Dates: start: 201403
  5. DOXEPIN HYDROCHLORIDE CAPSULES, USP [Suspect]
     Indication: RECTAL SPASM
     Route: 048
     Dates: start: 201403
  6. DOXEPIN HYDROCHLORIDE CAPSULES, USP [Suspect]
     Indication: ANXIETY
     Route: 048
     Dates: start: 201403

REACTIONS (5)
  - Drug ineffective [Recovered/Resolved]
  - Depression [Recovered/Resolved]
  - Anxiety [Recovered/Resolved]
  - Rectal spasm [Recovered/Resolved]
  - Antidepressant drug level decreased [Recovered/Resolved]
